FAERS Safety Report 21889971 (Version 1)
Quarter: 2023Q1

REPORT INFORMATION
  Report Type: Spontaneous
  Country: RU (occurrence: RU)
  Receive Date: 20230120
  Receipt Date: 20230120
  Transmission Date: 20230418
  Serious: Yes (Hospitalization)
  Sender: FDA-Public Use
  Company Number: RU-drreddys-LIT/RUS/23/0160093

PATIENT
  Age: 50 Year
  Sex: Female

DRUGS (4)
  1. CLOPIDOGREL [Suspect]
     Active Substance: CLOPIDOGREL BISULFATE
     Indication: Product used for unknown indication
  2. LOSARTAN [Suspect]
     Active Substance: LOSARTAN
     Indication: Product used for unknown indication
  3. HYDROXYCHLOROQUINE [Suspect]
     Active Substance: HYDROXYCHLOROQUINE
     Indication: Product used for unknown indication
  4. PROPRANOLOL [Suspect]
     Active Substance: PROPRANOLOL HYDROCHLORIDE
     Indication: Product used for unknown indication

REACTIONS (9)
  - Calculus urinary [Recovering/Resolving]
  - Pyelonephritis [Recovering/Resolving]
  - Hypertension [Recovering/Resolving]
  - Obesity [Recovering/Resolving]
  - Cerebral infarction [Recovering/Resolving]
  - Nephrolithiasis [Recovering/Resolving]
  - Rheumatoid arthritis [Recovering/Resolving]
  - Iron deficiency anaemia [Recovering/Resolving]
  - Ischaemic stroke [Recovering/Resolving]
